FAERS Safety Report 24985347 (Version 2)
Quarter: 2025Q3

REPORT INFORMATION
  Report Type: Report from Study
  Country: US (occurrence: None)
  Receive Date: 20250219
  Receipt Date: 20250816
  Transmission Date: 20251021
  Serious: No
  Sender: ALEXION PHARMACEUTICALS
  Company Number: US-AstraZeneca-2014SE72919

PATIENT
  Sex: Female
  Weight: 49.895 kg

DRUGS (1)
  1. NEXIUM [Suspect]
     Active Substance: ESOMEPRAZOLE MAGNESIUM
     Indication: Barrett^s oesophagus
     Dosage: 40 MILLIGRAM, QD

REACTIONS (5)
  - Hypoacusis [Unknown]
  - Feeding disorder [Unknown]
  - Dysphagia [Unknown]
  - Product dose omission issue [Unknown]
  - Intentional product misuse [Unknown]
